FAERS Safety Report 17698216 (Version 3)
Quarter: 2020Q3

REPORT INFORMATION
  Report Type: Spontaneous
  Country: US (occurrence: US)
  Receive Date: 20200423
  Receipt Date: 20200710
  Transmission Date: 20201102
  Serious: No
  Sender: FDA-Public Use
  Company Number: US-PFIZER INC-2020158132

PATIENT
  Age: 61 Year
  Sex: Female

DRUGS (1)
  1. XELJANZ [Suspect]
     Active Substance: TOFACITINIB CITRATE
     Indication: RHEUMATOID ARTHRITIS
     Dosage: 5 MG, 2X/DAY
     Route: 048
     Dates: start: 2019

REACTIONS (7)
  - Product dose omission issue [Unknown]
  - Intentional product misuse [Unknown]
  - Breast disorder female [Unknown]
  - Sensitivity to weather change [Unknown]
  - Fatigue [Unknown]
  - Condition aggravated [Unknown]
  - Memory impairment [Unknown]
